FAERS Safety Report 6013480-5 (Version None)
Quarter: 2008Q4

REPORT INFORMATION
  Report Type: 
  Country: None (occurrence: None)
  Receive Date: 20081219
  Receipt Date: 20081209
  Transmission Date: 20090506
  Serious: Yes (Death, Hospitalization)
  Sender: FDA-Public Use
  Company Number: JP-JNJFOC-20070306665

PATIENT
  Sex: Female
  Weight: 65 kg

DRUGS (25)
  1. REMICADE [Suspect]
     Route: 042
  2. REMICADE [Suspect]
     Route: 042
  3. REMICADE [Suspect]
     Route: 042
  4. REMICADE [Suspect]
     Route: 042
  5. REMICADE [Suspect]
     Route: 042
  6. REMICADE [Suspect]
     Route: 042
  7. REMICADE [Suspect]
     Route: 042
  8. REMICADE [Suspect]
     Route: 042
  9. REMICADE [Suspect]
     Dosage: 8 INFUSIONS ON UNSPECIFIED DATES
     Route: 042
  10. REMICADE [Suspect]
     Route: 042
  11. REMICADE [Suspect]
     Route: 042
  12. REMICADE [Suspect]
     Indication: RHEUMATOID ARTHRITIS
     Route: 042
  13. RHEUMATREX [Concomitant]
     Route: 048
  14. RHEUMATREX [Concomitant]
     Route: 048
  15. RHEUMATREX [Concomitant]
     Indication: RHEUMATOID ARTHRITIS
     Route: 048
  16. PREDONINE [Concomitant]
     Route: 048
  17. PREDONINE [Concomitant]
     Route: 048
  18. PREDONINE [Concomitant]
     Indication: RHEUMATOID ARTHRITIS
     Route: 048
  19. FOLIAMIN [Concomitant]
     Indication: PROPHYLAXIS
     Route: 048
  20. INFREE [Concomitant]
     Indication: RHEUMATOID ARTHRITIS
     Route: 048
  21. SELBEX [Concomitant]
     Indication: RHEUMATOID ARTHRITIS
     Route: 048
  22. BONARON [Concomitant]
     Indication: OSTEOPOROSIS PROPHYLAXIS
     Route: 048
  23. AMOBAN [Concomitant]
     Indication: INSOMNIA
     Route: 048
  24. ANTIHISTAMINE [Concomitant]
     Indication: PREMEDICATION
  25. ADRENAL HORMONE PREPARATIONS [Concomitant]
     Indication: RHEUMATOID ARTHRITIS

REACTIONS (4)
  - HEPATIC FAILURE [None]
  - MALAISE [None]
  - MULTI-ORGAN FAILURE [None]
  - PYREXIA [None]
